FAERS Safety Report 23014735 (Version 2)
Quarter: 2023Q4

REPORT INFORMATION
  Report Type: Spontaneous
  Country: CO (occurrence: CO)
  Receive Date: 20231002
  Receipt Date: 20231121
  Transmission Date: 20240109
  Serious: No
  Sender: FDA-Public Use
  Company Number: CO-AMGEN-COLSP2023171365

PATIENT
  Age: 48 Year
  Sex: Female
  Weight: 60 kg

DRUGS (2)
  1. PEGFILGRASTIM [Suspect]
     Active Substance: PEGFILGRASTIM
     Indication: Prophylaxis
     Dosage: 6 MILLIGRAM
     Route: 058
  2. ADO-TRASTUZUMAB EMTANSINE [Concomitant]
     Active Substance: ADO-TRASTUZUMAB EMTANSINE
     Dosage: 3.6 MILLIGRAM/KILOGRAM, 3.6 MG/KG: 170MG IV; ADJUSTED TO 80% ON DAY 1
     Route: 042

REACTIONS (7)
  - Device issue [Unknown]
  - Device occlusion [Unknown]
  - Erythema [Unknown]
  - Oedema [Recovering/Resolving]
  - Application site bruise [Unknown]
  - Application site pain [Recovered/Resolved]
  - Application site haemorrhage [Unknown]

NARRATIVE: CASE EVENT DATE: 20230901
